FAERS Safety Report 9057439 (Version 1)
Quarter: 2013Q1

REPORT INFORMATION
  Report Type: Spontaneous
  Country: CA (occurrence: CA)
  Receive Date: 20130204
  Receipt Date: 20130204
  Transmission Date: 20140127
  Serious: Yes (Hospitalization, Other)
  Sender: FDA-Public Use
  Company Number: CA-GILEAD-2013-0068687

PATIENT
  Age: 29 Year
  Sex: Female

DRUGS (2)
  1. CAYSTON [Suspect]
     Indication: CYSTIC FIBROSIS
     Route: 055
  2. TOBRAMYCIN [Concomitant]
     Indication: CYSTIC FIBROSIS

REACTIONS (2)
  - Forced expiratory volume decreased [Unknown]
  - Drug ineffective [Unknown]
